FAERS Safety Report 8236637-1 (Version None)
Quarter: 2012Q1

REPORT INFORMATION
  Report Type: 
  Country: None (occurrence: None)
  Receive Date: 20120326
  Receipt Date: 20120326
  Transmission Date: 20120608
  Serious: No
  Sender: FDA-Public Use
  Company Number: None

PATIENT
  Sex: Male
  Weight: 79.3795 kg

DRUGS (2)
  1. SUPER POTENCY VITAMIN D3 20062U SUNDOWN NATURALS [Suspect]
     Indication: VITAMIN D DECREASED
     Dosage: 2 CAPSULES 4000 IU ONCE; 2 CAPSULES 4000 IU ONCE
     Dates: start: 20120206
  2. SUPER POTENCY VITAMIN D3 20062U SUNDOWN NATURALS [Suspect]
     Indication: VITAMIN D DECREASED
     Dosage: 2 CAPSULES 4000 IU ONCE; 2 CAPSULES 4000 IU ONCE
     Dates: start: 20120207

REACTIONS (3)
  - SOMNOLENCE [None]
  - ASTHENIA [None]
  - NERVOUSNESS [None]
